FAERS Safety Report 19062751 (Version 1)
Quarter: 2021Q1

REPORT INFORMATION
  Report Type: Spontaneous
  Country: US (occurrence: US)
  Receive Date: 20210326
  Receipt Date: 20210326
  Transmission Date: 20210420
  Serious: No
  Sender: FDA-Public Use
  Company Number: US-BAYER-2021-108855

PATIENT

DRUGS (4)
  1. CLARITIN [Suspect]
     Active Substance: LORATADINE
     Indication: SWELLING OF EYELID
     Dosage: UNK
     Dates: start: 202103
  2. CLARITIN [Suspect]
     Active Substance: LORATADINE
     Indication: HEADACHE
  3. TYLENOL [Concomitant]
     Active Substance: ACETAMINOPHEN
     Dosage: UNK
     Dates: start: 202103
  4. CLARITIN [Suspect]
     Active Substance: LORATADINE
     Indication: DIZZINESS

REACTIONS (3)
  - Euphoric mood [None]
  - Food craving [None]
  - Product use in unapproved indication [Unknown]
